FAERS Safety Report 4472229-8 (Version None)
Quarter: 2004Q4

REPORT INFORMATION
  Report Type: 
  Country: None (occurrence: None)
  Receive Date: 20041012
  Receipt Date: 20041006
  Transmission Date: 20050328
  Serious: Yes (Life-Threatening, Hospitalization)
  Sender: FDA-Public Use
  Company Number: US-MERCK-0410USA00943

PATIENT
  Age: 50 Year
  Sex: Male

DRUGS (16)
  1. PERCOCET [Concomitant]
     Route: 065
  2. ALBUTEROL [Concomitant]
     Route: 065
  3. ASPIRIN [Concomitant]
     Route: 065
  4. ATENOLOL [Concomitant]
     Route: 065
  5. BUSPAR [Concomitant]
     Route: 065
  6. DIAZEPAM [Concomitant]
     Route: 065
  7. ETODOLAC [Concomitant]
     Route: 065
  8. ATROVENT [Concomitant]
     Route: 065
  9. NIACIN [Concomitant]
     Route: 065
  10. OMEPRAZOLE [Concomitant]
     Route: 065
  11. PROPRANOLOL HYDROCHLORIDE [Concomitant]
     Route: 065
  12. VIOXX [Suspect]
     Indication: BACK PAIN
     Route: 048
     Dates: start: 19990101, end: 20041005
  13. VIOXX [Suspect]
     Indication: ARTHRALGIA
     Route: 048
     Dates: start: 19990101, end: 20041005
  14. ZOCOR [Concomitant]
     Route: 048
  15. AZMACORT [Concomitant]
     Route: 065
  16. TRIFLUOPERAZINE HYDROCHLORIDE [Concomitant]
     Route: 065

REACTIONS (3)
  - HYPOAESTHESIA [None]
  - MYOCARDIAL INFARCTION [None]
  - PARAESTHESIA [None]
